FAERS Safety Report 7308719-X (Version None)
Quarter: 2011Q1

REPORT INFORMATION
  Report Type: 
  Country: None (occurrence: None)
  Receive Date: 20110211
  Receipt Date: 20110207
  Transmission Date: 20110831
  Serious: Yes (Life-Threatening, Hospitalization)
  Sender: FDA-Public Use
  Company Number: FR-1184847

PATIENT
  Age: 77 Year
  Sex: Male
  Weight: 65 kg

DRUGS (2)
  1. BIMATOPROST [Concomitant]
  2. TRAVATAN [Suspect]
     Indication: GLAUCOMA
     Dosage: (1 GTT BID OPHTHALMIC)
     Route: 047
     Dates: start: 20100201, end: 20101115

REACTIONS (1)
  - SUBDURAL HAEMATOMA [None]
